FAERS Safety Report 8909299 (Version 1)
Quarter: 2012Q4

REPORT INFORMATION
  Report Type: 
  Country: US (occurrence: US)
  Receive Date: 20121114
  Receipt Date: 20121114
  Transmission Date: 20130627
  Serious: Yes (Hospitalization, Other)
  Sender: FDA-Public Use
  Company Number: US-AMGEN-USASP2012071836

PATIENT
  Age: 80 Year
  Sex: Female

DRUGS (4)
  1. ENBREL [Suspect]
     Indication: RHEUMATOID ARTHRITIS
     Dosage: 50 mg, qwk
     Dates: start: 20110904
  2. METHOTREXATE [Concomitant]
     Dosage: 2.5 mg, qwk
     Dates: start: 2009
  3. PREDNISONE [Concomitant]
     Dosage: UNK
  4. NEURONTIN [Concomitant]
     Dosage: UNK

REACTIONS (19)
  - Neoplasm malignant [Recovered/Resolved]
  - Diverticulum [Recovered/Resolved]
  - Syncope [Recovered/Resolved]
  - Upper limb fracture [Recovered/Resolved]
  - Condition aggravated [Not Recovered/Not Resolved]
  - Neuropathy peripheral [Not Recovered/Not Resolved]
  - Breast pain [Not Recovered/Not Resolved]
  - Genital discomfort [Not Recovered/Not Resolved]
  - Adverse drug reaction [Recovered/Resolved]
  - Limb injury [Recovered/Resolved]
  - Polyp [Recovered/Resolved]
  - Fall [Recovered/Resolved]
  - Blood potassium decreased [Unknown]
  - Blood iron decreased [Unknown]
  - Red blood cell sedimentation rate increased [Unknown]
  - Neutrophil count decreased [Unknown]
  - Laboratory test abnormal [Unknown]
  - Bone density abnormal [Not Recovered/Not Resolved]
  - Blood calcium decreased [Not Recovered/Not Resolved]
